FAERS Safety Report 5804533-2 (Version None)
Quarter: 2008Q3

REPORT INFORMATION
  Report Type: 
  Country: None (occurrence: None)
  Receive Date: 20080707
  Receipt Date: 20080707
  Transmission Date: 20090109
  Serious: Yes (Life-Threatening, Other)
  Sender: FDA-Public Use
  Company Number: None

PATIENT
  Age: 58 Year
  Sex: Male
  Weight: 87.0906 kg

DRUGS (2)
  1. FENTANYL TRANSDERMAL SYSTEM [Suspect]
     Indication: BACK PAIN
     Dosage: TEN PATCHES 1 PATCH EVERY 72 H
     Route: 062
     Dates: start: 20080607, end: 20080612
  2. FENTANYL TRANSDERMAL SYSTEM [Suspect]
     Indication: NECK PAIN
     Dosage: TEN PATCHES 1 PATCH EVERY 72 H
     Route: 062
     Dates: start: 20080607, end: 20080612

REACTIONS (5)
  - AMNESIA [None]
  - CARDIAC MURMUR [None]
  - DELUSION [None]
  - HALLUCINATION, AUDITORY [None]
  - THERMAL BURN [None]
